FAERS Safety Report 22585551 (Version 2)
Quarter: 2024Q1

REPORT INFORMATION
  Report Type: Report from Study
  Country: EG (occurrence: EG)
  Receive Date: 20230610
  Receipt Date: 20240129
  Transmission Date: 20240410
  Serious: Yes (Other)
  Sender: FDA-Public Use
  Company Number: EG-002147023-NVSC2023EG130104

PATIENT
  Age: 52 Year
  Sex: Male

DRUGS (5)
  1. ENTRESTO [Suspect]
     Active Substance: SACUBITRIL\VALSARTAN
     Indication: Cardiac failure
     Dosage: 50 MG, BID (ONE TABLET)
     Route: 048
     Dates: start: 2021, end: 20230601
  2. ENTRESTO [Suspect]
     Active Substance: SACUBITRIL\VALSARTAN
     Dosage: 100 MG, BID (ONE TABLET)
     Route: 048
     Dates: start: 20230601, end: 20240119
  3. GLYBOFEN [Concomitant]
     Indication: Diabetes mellitus
     Dosage: UNK, QD
     Route: 065
     Dates: start: 2013
  4. RIVO [Concomitant]
     Indication: Anticoagulant therapy
     Dosage: 100 MG, QD
     Route: 048
     Dates: start: 2021
  5. ZYRTEC [Concomitant]
     Active Substance: CETIRIZINE HYDROCHLORIDE
     Indication: Seasonal allergy
     Dosage: UNK, ONCE/SINGLE
     Route: 048

REACTIONS (3)
  - Lower respiratory tract infection [Not Recovered/Not Resolved]
  - Ejection fraction decreased [Recovering/Resolving]
  - Fatigue [Not Recovered/Not Resolved]

NARRATIVE: CASE EVENT DATE: 20230601
